FAERS Safety Report 4332595-0 (Version None)
Quarter: 2004Q1

REPORT INFORMATION
  Report Type: 
  Country: None (occurrence: None)
  Receive Date: 20040330
  Receipt Date: 20040316
  Transmission Date: 20041129
  Serious: Yes (Life-Threatening, Hospitalization)
  Sender: FDA-Public Use
  Company Number: 2004-FF-00191FF

PATIENT
  Age: 4 Day
  Sex: Male

DRUGS (5)
  1. VIRAMUNE [Suspect]
     Indication: HIV INFECTION
     Dosage: NR (NR) IU
     Route: 015
     Dates: start: 20030601
  2. COMBIVIR [Concomitant]
  3. RETROVIR [Concomitant]
  4. AUGMENTIN (NR) [Concomitant]
  5. CEFOTAXIME (CEFOTAXIME) (NR) [Concomitant]

REACTIONS (5)
  - ACIDOSIS [None]
  - APGAR SCORE LOW [None]
  - FEEDING PROBLEM IN NEWBORN [None]
  - NECROTISING ENTEROCOLITIS NEONATAL [None]
  - NEONATAL RESPIRATORY DISTRESS SYNDROME [None]
